FAERS Safety Report 9467702 (Version 1)
Quarter: 2013Q3

REPORT INFORMATION
  Report Type: Spontaneous
  Country: US (occurrence: None)
  Receive Date: 20130819
  Receipt Date: 20130819
  Transmission Date: 20140515
  Serious: Yes (Disabling)
  Sender: FDA-Public Use
  Company Number: None

PATIENT
  Age: 34 Year
  Sex: Female
  Weight: 49.9 kg

DRUGS (2)
  1. CIPRO [Suspect]
     Indication: ABDOMINAL PAIN UPPER
     Dosage: 1 PILL  TWICE DAILY  --
  2. CIPRO [Suspect]
     Indication: DIARRHOEA
     Dosage: 1 PILL  TWICE DAILY  --

REACTIONS (9)
  - Dizziness [None]
  - Headache [None]
  - Pain [None]
  - Malaise [None]
  - Blood pressure increased [None]
  - Myalgia [None]
  - Blepharospasm [None]
  - Heart rate irregular [None]
  - Extrasystoles [None]
